FAERS Safety Report 24691330 (Version 1)
Quarter: 2024Q4

REPORT INFORMATION
  Report Type: Report from Study
  Country: GB (occurrence: GB)
  Receive Date: 20241203
  Receipt Date: 20241203
  Transmission Date: 20250114
  Serious: Yes (Hospitalization)
  Sender: BAXTER
  Company Number: GB-BAXTER-2024BAX028654

PATIENT
  Age: 72 Year
  Sex: Male
  Weight: 48.9 kg

DRUGS (27)
  1. DEXTROSE [Suspect]
     Active Substance: DEXTROSE MONOHYDRATE
     Indication: Parenteral nutrition
     Dosage: 1471 ML AT AN UNSPECIFIED FREQUENCY
     Route: 042
     Dates: start: 20241118, end: 20241119
  2. DEXTROSE [Suspect]
     Active Substance: DEXTROSE MONOHYDRATE
     Indication: Short-bowel syndrome
  3. SYNTHAMIN [Suspect]
     Active Substance: AMINO ACIDS
     Indication: Parenteral nutrition
     Dosage: (SYNTHAMIN 17 EF) 1471 ML AT AN UNSPECIFIED FREQUENCY
     Route: 042
     Dates: start: 20241118, end: 20241119
  4. SYNTHAMIN [Suspect]
     Active Substance: AMINO ACIDS
     Indication: Short-bowel syndrome
  5. WATER FOR INJECTION [Suspect]
     Active Substance: WATER
     Indication: Parenteral nutrition
     Dosage: 1471 ML AT AN UNSPECIFIED FREQUENCY
     Route: 042
     Dates: start: 20241118, end: 20241119
  6. WATER FOR INJECTION [Suspect]
     Active Substance: WATER
     Indication: Short-bowel syndrome
  7. CERNEVIT [Suspect]
     Active Substance: VITAMINS
     Indication: Parenteral nutrition
     Dosage: (RECON WITH 5 ML WATER FOR INJECTION) 1471 ML AT AN UNSPECIFIED FREQUENCY
     Route: 042
     Dates: start: 20241118, end: 20241119
  8. CERNEVIT [Suspect]
     Active Substance: VITAMINS
     Indication: Short-bowel syndrome
  9. OLIVE OIL\SOYBEAN OIL [Suspect]
     Active Substance: OLIVE OIL\SOYBEAN OIL
     Indication: Parenteral nutrition
     Dosage: 1471 ML AT AN UNSPECIFIED FREQUENCY
     Route: 042
     Dates: start: 20241118, end: 20241119
  10. OLIVE OIL\SOYBEAN OIL [Suspect]
     Active Substance: OLIVE OIL\SOYBEAN OIL
     Indication: Short-bowel syndrome
  11. SODIUM GLYCEROPHOSPHATE [Suspect]
     Active Substance: SODIUM GLYCEROPHOSPHATE
     Indication: Parenteral nutrition
     Dosage: 1471 ML AT AN UNSPECIFIED FREQUENCY
     Route: 042
     Dates: start: 20241118, end: 20241119
  12. SODIUM GLYCEROPHOSPHATE [Suspect]
     Active Substance: SODIUM GLYCEROPHOSPHATE
     Indication: Short-bowel syndrome
  13. SODIUM CHLORIDE [Suspect]
     Active Substance: SODIUM CHLORIDE
     Indication: Parenteral nutrition
     Dosage: 1471 ML AT AN UNSPECIFIED FREQUENCY
     Route: 042
     Dates: start: 20241118, end: 20241119
  14. SODIUM CHLORIDE [Suspect]
     Active Substance: SODIUM CHLORIDE
     Indication: Short-bowel syndrome
  15. POTASSIUM CHLORIDE [Suspect]
     Active Substance: POTASSIUM CHLORIDE
     Indication: Parenteral nutrition
     Dosage: 1471 ML AT AN UNSPECIFIED FREQUENCY
     Route: 042
     Dates: start: 20241118, end: 20241119
  16. POTASSIUM CHLORIDE [Suspect]
     Active Substance: POTASSIUM CHLORIDE
     Indication: Short-bowel syndrome
  17. CALCIUM CHLORIDE [Suspect]
     Active Substance: CALCIUM CHLORIDE
     Indication: Parenteral nutrition
     Dosage: 1471 ML AT AN UNSPECIFIED FREQUENCY
     Route: 042
     Dates: start: 20241118, end: 20241119
  18. CALCIUM CHLORIDE [Suspect]
     Active Substance: CALCIUM CHLORIDE
     Indication: Short-bowel syndrome
  19. SODIUM SELENITE [Suspect]
     Active Substance: SODIUM SELENITE
     Indication: Parenteral nutrition
     Dosage: 1471 ML AT AN UNSPECIFIED FREQUENCY
     Route: 042
     Dates: start: 20241118, end: 20241119
  20. SODIUM SELENITE [Suspect]
     Active Substance: SODIUM SELENITE
     Indication: Short-bowel syndrome
  21. WATER FOR INJECTION [Suspect]
     Active Substance: WATER
     Indication: Parenteral nutrition
     Dosage: 1471 ML AT AN UNSPECIFIED FREQUENCY
     Route: 042
     Dates: start: 20241118, end: 20241119
  22. WATER FOR INJECTION [Suspect]
     Active Substance: WATER
     Indication: Short-bowel syndrome
  23. MAGNESIUM SULFATE [Suspect]
     Active Substance: MAGNESIUM SULFATE
     Indication: Parenteral nutrition
     Dosage: 1471 ML AT AN UNSPECIFIED FREQUENCY
     Route: 042
     Dates: start: 20241118, end: 20241119
  24. MAGNESIUM SULFATE [Suspect]
     Active Substance: MAGNESIUM SULFATE
     Indication: Short-bowel syndrome
  25. ELECTROLYTES NOS\MINERALS [Suspect]
     Active Substance: ELECTROLYTES NOS\MINERALS
     Indication: Parenteral nutrition
     Dosage: 1471 ML AT AN UNSPECIFIED FREQUENCY
     Route: 042
     Dates: start: 20241118, end: 20241119
  26. ELECTROLYTES NOS\MINERALS [Suspect]
     Active Substance: ELECTROLYTES NOS\MINERALS
     Indication: Short-bowel syndrome
  27. UNSPECIFIED INGREDIENT [Suspect]
     Active Substance: UNSPECIFIED INGREDIENT
     Route: 065

REACTIONS (5)
  - Hypophagia [Not Recovered/Not Resolved]
  - Malaise [Not Recovered/Not Resolved]
  - Asthenia [Not Recovered/Not Resolved]
  - Nausea [Not Recovered/Not Resolved]
  - Vomiting [Recovered/Resolved]

NARRATIVE: CASE EVENT DATE: 20241120
